FAERS Safety Report 25133390 (Version 1)
Quarter: 2025Q1

REPORT INFORMATION
  Report Type: Spontaneous
  Country: US (occurrence: US)
  Receive Date: 20250328
  Receipt Date: 20250328
  Transmission Date: 20250409
  Serious: No
  Sender: SANOFI AVENTIS
  Company Number: US-SA-2025SA089084

PATIENT
  Age: 66 Year
  Sex: Male
  Weight: 100 kg

DRUGS (12)
  1. DUPIXENT [Suspect]
     Active Substance: DUPILUMAB
     Indication: Chronic rhinosinusitis with nasal polyps
     Dosage: 300.000MG QOW
     Route: 058
     Dates: start: 20210622
  2. DUPIXENT [Suspect]
     Active Substance: DUPILUMAB
     Indication: Nasal polyps
  3. MOUNJARO [Concomitant]
     Active Substance: TIRZEPATIDE
  4. CARVEDILOL [Concomitant]
     Active Substance: CARVEDILOL
  5. HYDROCHLOROTHIAZIDE\LOSARTAN POTASSIUM [Concomitant]
     Active Substance: HYDROCHLOROTHIAZIDE\LOSARTAN POTASSIUM
  6. ARIMIDEX [Concomitant]
     Active Substance: ANASTROZOLE
  7. LEVOTHYROXINE [Concomitant]
     Active Substance: LEVOTHYROXINE
  8. FLAXSEED [Concomitant]
     Active Substance: FLAX SEED
  9. FISH OIL [Concomitant]
     Active Substance: FISH OIL
  10. VITAMINS [Concomitant]
     Active Substance: VITAMINS
  11. DILTIAZEM [Concomitant]
     Active Substance: DILTIAZEM
  12. XARELTO [Concomitant]
     Active Substance: RIVAROXABAN

REACTIONS (1)
  - Arthralgia [Unknown]
